FAERS Safety Report 7421004-0 (Version None)
Quarter: 2011Q2

REPORT INFORMATION
  Report Type: 
  Country: None (occurrence: None)
  Receive Date: 20110418
  Receipt Date: 20110411
  Transmission Date: 20111010
  Serious: Yes (Death, Other)
  Sender: FDA-Public Use
  Company Number: PHHY2011JP31691

PATIENT
  Age: 47 Year
  Sex: Female

DRUGS (2)
  1. CARBOPLATIN [Suspect]
     Indication: UTERINE CANCER
     Dosage: 1 DF (AUC2), QW
     Route: 042
  2. PACLITAXEL [Suspect]
     Indication: UTERINE CANCER
     Dosage: 60 MG/M2, QW

REACTIONS (7)
  - METASTASES TO OVARY [None]
  - METASTASES TO LYMPH NODES [None]
  - NEUTROPHIL COUNT DECREASED [None]
  - METASTASES TO CENTRAL NERVOUS SYSTEM [None]
  - METASTASES TO SPINE [None]
  - ACCIDENT [None]
  - NEOPLASM MALIGNANT [None]
